FAERS Safety Report 6399049-1 (Version None)
Quarter: 2009Q4

REPORT INFORMATION
  Report Type: 
  Country: None (occurrence: None)
  Receive Date: 20091013
  Receipt Date: 20091008
  Transmission Date: 20100525
  Serious: Yes (Other)
  Sender: FDA-Public Use
  Company Number: US-GENENTECH-288607

PATIENT
  Sex: Female

DRUGS (2)
  1. BEVACIZUMAB [Suspect]
     Indication: NEUROBLASTOMA
     Dosage: UNK
     Dates: start: 20090614
  2. I-131 3F8 [Suspect]
     Indication: NEUROBLASTOMA
     Dosage: UNK
     Dates: start: 20090708

REACTIONS (1)
  - DRUG HYPERSENSITIVITY [None]
